FAERS Safety Report 10262784 (Version 2)
Quarter: 2014Q2

REPORT INFORMATION
  Report Type: Report from Study
  Country: US (occurrence: US)
  Receive Date: 20140626
  Receipt Date: 20140626
  Transmission Date: 20141212
  Serious: Yes (Life-Threatening, Hospitalization, Other)
  Sender: FDA-Public Use
  Company Number: US-MYLANLABS-2013S1016226

PATIENT
  Age: 56 Year
  Sex: Male
  Weight: 96.07 kg

DRUGS (12)
  1. JALYN [Concomitant]
     Dosage: 0.5/0.4MG
  2. TOVIAZ [Concomitant]
  3. SIMVASTATIN [Concomitant]
  4. TESTOSTERONE [Concomitant]
     Route: 030
  5. VITAMIN D [Concomitant]
  6. SERTRALINE [Concomitant]
  7. OMEPRAZOLE [Concomitant]
  8. CLOZAPINE TABLETS [Suspect]
     Indication: SCHIZOPHRENIA, PARANOID TYPE
     Route: 048
     Dates: start: 20120229, end: 20130729
  9. AMLODIPINE [Concomitant]
  10. TYLENOL [Concomitant]
     Indication: PAIN
     Route: 048
  11. NORCO [Concomitant]
     Indication: PAIN
     Dosage: 5/325MG 1 EVERY 6HOURS PRN
  12. HALDOL DECANOATE [Concomitant]
     Dosage: THIS S TO REPLACE FLUPHENAZINE DECANOATE DUE TO LACK OF SUPPLIES OF THE LATTER
     Route: 030

REACTIONS (4)
  - Agranulocytosis [Recovered/Resolved]
  - Granulocytopenia [Recovered/Resolved]
  - Leukopenia [Recovered/Resolved]
  - Pyrexia [Recovered/Resolved]
